FAERS Safety Report 6964136-3 (Version None)
Quarter: 2010Q3

REPORT INFORMATION
  Report Type: 
  Country: None (occurrence: None)
  Receive Date: 20100903
  Receipt Date: 20100830
  Transmission Date: 20110219
  Serious: Yes (Hospitalization)
  Sender: FDA-Public Use
  Company Number: US-BIOGENIDEC-2009BI036981

PATIENT
  Sex: Female
  Weight: 74 kg

DRUGS (1)
  1. TYSABRI [Suspect]
     Indication: MULTIPLE SCLEROSIS
     Route: 042
     Dates: start: 20071119

REACTIONS (12)
  - BACK PAIN [None]
  - DIZZINESS [None]
  - FALL [None]
  - FATIGUE [None]
  - INTERVERTEBRAL DISC PROTRUSION [None]
  - MEMORY IMPAIRMENT [None]
  - PAIN IN EXTREMITY [None]
  - PYREXIA [None]
  - SPINAL COLUMN STENOSIS [None]
  - UTERINE CYST [None]
  - UTERINE LEIOMYOMA [None]
  - VISION BLURRED [None]
